FAERS Safety Report 8811579 (Version 1)
Quarter: 2012Q4

REPORT INFORMATION
  Report Type: 
  Country: US (occurrence: US)
  Receive Date: 20120927
  Receipt Date: 20120927
  Transmission Date: 20130627
  Serious: Yes (Other)
  Sender: FDA-Public Use
  Company Number: PHHY2012US083677

PATIENT
  Age: 42 Year
  Sex: Female

DRUGS (1)
  1. GILENYA [Suspect]
     Indication: MULTIPLE SCLEROSIS
     Dosage: 0.5 mg, QD
     Route: 048
     Dates: start: 20120919

REACTIONS (5)
  - Myocardial ischaemia [Unknown]
  - Blood pressure decreased [Recovered/Resolved]
  - Fatigue [Recovered/Resolved]
  - Yawning [Recovered/Resolved]
  - Dizziness [Recovered/Resolved]
